FAERS Safety Report 5095858-X (Version None)
Quarter: 2006Q3

REPORT INFORMATION
  Report Type: 
  Country: None (occurrence: None)
  Receive Date: 20060905
  Receipt Date: 20060627
  Transmission Date: 20061208
  Serious: Yes (Hospitalization, Other)
  Sender: FDA-Public Use
  Company Number: TH-BRISTOL-MYERS SQUIBB COMPANY-13424981

PATIENT
  Age: 30 Year
  Sex: Female

DRUGS (2)
  1. LOPINAVIR + RITONAVIR [Suspect]
     Indication: HIV INFECTION
     Dosage: 800/200 MG
     Route: 048
     Dates: start: 20060502, end: 20060626
  2. TENOFOVIR DF + EMTRICITABINE [Suspect]
     Indication: HIV INFECTION
     Dosage: 300/200 MG
     Route: 048
     Dates: start: 20060502, end: 20060626

REACTIONS (3)
  - MYALGIA [None]
  - OEDEMA [None]
  - PNEUMONIA [None]
